FAERS Safety Report 5715876-5 (Version None)
Quarter: 2008Q2

REPORT INFORMATION
  Report Type: 
  Country: None (occurrence: None)
  Receive Date: 20080424
  Receipt Date: 20080415
  Transmission Date: 20081010
  Serious: Yes (Other)
  Sender: FDA-Public Use
  Company Number: US-ROCHE-548073

PATIENT
  Age: 50 Year
  Sex: Female

DRUGS (1)
  1. BONIVA [Suspect]
     Indication: OSTEOPOROSIS
     Dosage: ONE TIME ONLY
     Route: 065
     Dates: start: 20061031, end: 20061031

REACTIONS (4)
  - INSOMNIA [None]
  - LOOSE TOOTH [None]
  - ORAL PAIN [None]
  - URTICARIA [None]
